FAERS Safety Report 22758353 (Version 4)
Quarter: 2024Q3

REPORT INFORMATION
  Report Type: Spontaneous
  Country: US (occurrence: US)
  Receive Date: 20230727
  Receipt Date: 20240813
  Transmission Date: 20241017
  Serious: Yes (Other)
  Sender: ABBVIE
  Company Number: US-ABBVIE-5344380

PATIENT
  Sex: Female

DRUGS (1)
  1. SYNTHROID [Suspect]
     Active Substance: LEVOTHYROXINE SODIUM
     Indication: Product used for unknown indication
     Route: 048

REACTIONS (7)
  - Surgery [Unknown]
  - Insomnia [Unknown]
  - Alopecia [Unknown]
  - Hot flush [Unknown]
  - Dizziness [Unknown]
  - Adverse reaction [Unknown]
  - Endocrine disorder [Unknown]
